FAERS Safety Report 4539535-X (Version None)
Quarter: 2004Q4

REPORT INFORMATION
  Report Type: 
  Country: None (occurrence: None)
  Receive Date: 20041222
  Receipt Date: 20041206
  Transmission Date: 20050328
  Serious: Yes (Life-Threatening, Hospitalization)
  Sender: FDA-Public Use
  Company Number: 20040060USST

PATIENT
  Age: 19 Year
  Sex: Male

DRUGS (6)
  1. PROCARBAZINE HYDROCHLORIDE [Suspect]
     Indication: HODGKIN'S DISEASE
     Dosage: 100 MG/SQ. METER 1 DAY, IV
     Route: 042
     Dates: start: 20040830, end: 20040830
  2. ETOPOPHOS (ETOPOSIDE PHOPHATE) [Suspect]
     Indication: HODGKIN'S DISEASE
     Dosage: 200 MG/SQ. METER 1 DAY, IV
     Route: 042
     Dates: start: 20040830, end: 20040830
  3. CYCLOPHOSPHAMIDE [Suspect]
     Indication: HODGKIN'S DISEASE
     Dosage: 1250 MG/SQ. METER 1 DAY, IV
     Route: 042
     Dates: start: 20040830, end: 20040830
  4. VINCRISTINE [Suspect]
     Indication: HODGKIN'S DISEASE
     Dosage: 1.4 MG/SQ. METER 1 DAY, IV
     Route: 042
     Dates: start: 20040830, end: 20040830
  5. ADRIAMYCIN PFS [Suspect]
     Indication: HODGKIN'S DISEASE
     Dosage: 35 MG/SQ. METER 1 DAY, IV
     Route: 042
     Dates: start: 20040830, end: 20040830
  6. PREDNISOLONE [Suspect]
     Indication: HODGKIN'S DISEASE
     Dosage: 40 MG/SQ. METER 1 DAY, ORAL
     Route: 048
     Dates: start: 20040830, end: 20040830

REACTIONS (7)
  - AGRANULOCYTOSIS [None]
  - ANAEMIA [None]
  - MUCOSAL INFLAMMATION [None]
  - NECROSIS [None]
  - SEPTIC SHOCK [None]
  - STAPHYLOCOCCAL SEPSIS [None]
  - THROMBOCYTOPENIA [None]
